FAERS Safety Report 6519332-6 (Version None)
Quarter: 2009Q4

REPORT INFORMATION
  Report Type: 
  Country: None (occurrence: None)
  Receive Date: 20091224
  Receipt Date: 20091224
  Transmission Date: 20100525
  Serious: Yes (Death)
  Sender: FDA-Public Use
  Company Number: None

PATIENT
  Sex: Female
  Weight: 26.8 kg

DRUGS (3)
  1. ABRAXANE [Suspect]
     Indication: BREAST CANCER METASTATIC
     Dosage: 100MG/M2 185-195MG QWEEK 2WKS ON - 1 OFF IV 1ST DOSE
     Route: 042
     Dates: start: 20090611, end: 20091217
  2. HERCEPTIN5 [Concomitant]
  3. ZOMETO [Concomitant]

REACTIONS (4)
  - INFUSION RELATED REACTION [None]
  - PULSE ABSENT [None]
  - RESPIRATION ABNORMAL [None]
  - UNRESPONSIVE TO STIMULI [None]
